FAERS Safety Report 4673133-2 (Version None)
Quarter: 2005Q2

REPORT INFORMATION
  Report Type: 
  Country: None (occurrence: None)
  Receive Date: 20050525
  Receipt Date: 20050513
  Transmission Date: 20051028
  Serious: Yes (Other)
  Sender: FDA-Public Use
  Company Number: M-780277

PATIENT
  Age: 26 Year
  Sex: Male

DRUGS (1)
  1. HALDOL [Suspect]
     Indication: SCHIZOPHRENIA
     Route: 049

REACTIONS (2)
  - DYSTONIA [None]
  - RESPIRATORY DISTRESS [None]
